FAERS Safety Report 25884059 (Version 1)
Quarter: 2025Q4

REPORT INFORMATION
  Report Type: Spontaneous
  Country: GB (occurrence: GB)
  Receive Date: 20251006
  Receipt Date: 20251006
  Transmission Date: 20260118
  Serious: Yes (Other)
  Sender: AUROBINDO
  Company Number: GB-MHRA-MED-202509241539363950-JGLFP

PATIENT
  Sex: Female

DRUGS (1)
  1. ACETAMINOPHEN [Suspect]
     Active Substance: ACETAMINOPHEN
     Indication: Rheumatoid arthritis
     Dosage: 30 GRAM, EVERY WEEK
     Route: 065

REACTIONS (3)
  - Trigeminal neuralgia [Unknown]
  - Malaise [Unknown]
  - Neuralgia [Unknown]

NARRATIVE: CASE EVENT DATE: 20250923
